FAERS Safety Report 16652230 (Version 2)
Quarter: 2019Q3

REPORT INFORMATION
  Report Type: Spontaneous
  Country: US (occurrence: US)
  Receive Date: 20190731
  Receipt Date: 20190806
  Transmission Date: 20191004
  Serious: No
  Sender: FDA-Public Use
  Company Number: US-PFIZER INC-2019326235

PATIENT
  Age: 83 Year
  Sex: Female

DRUGS (1)
  1. XELJANZ XR [Suspect]
     Active Substance: TOFACITINIB CITRATE
     Indication: RHEUMATOID ARTHRITIS
     Dosage: 11 MG, 1X/DAY (ONE TABLET BY MOUTH DAILY)
     Route: 048
     Dates: start: 20190709

REACTIONS (7)
  - Decreased appetite [Unknown]
  - Hypertension [Unknown]
  - Feeling abnormal [Unknown]
  - Dysphonia [Unknown]
  - Sneezing [Unknown]
  - Pain [Unknown]
  - Pruritus [Not Recovered/Not Resolved]
